FAERS Safety Report 8535481-5 (Version None)
Quarter: 2012Q3

REPORT INFORMATION
  Report Type: 
  Country: None (occurrence: None)
  Receive Date: 20120718
  Receipt Date: 20120718
  Transmission Date: 20120928
  Serious: Yes (Other)
  Sender: FDA-Public Use
  Company Number: None

PATIENT
  Age: 46 Year
  Sex: Female
  Weight: 78.0187 kg

DRUGS (2)
  1. YAZ [Suspect]
     Indication: MIGRAINE
     Dosage: ONE TABLET DAILY EVERY 28 DAYS
     Route: 048
     Dates: start: 20070610, end: 20070925
  2. YAZ [Suspect]
     Indication: PREMENSTRUAL SYNDROME
     Dosage: ONE TABLET DAILY EVERY 28 DAYS
     Route: 048
     Dates: start: 20070610, end: 20070925

REACTIONS (1)
  - DEEP VEIN THROMBOSIS [None]
